FAERS Safety Report 25299541 (Version 1)
Quarter: 2025Q2

REPORT INFORMATION
  Report Type: Spontaneous
  Country: US (occurrence: US)
  Receive Date: 20250512
  Receipt Date: 20250512
  Transmission Date: 20250717
  Serious: Yes (Other)
  Sender: DR REDDYS
  Company Number: None

PATIENT
  Age: 59 Year
  Sex: Male

DRUGS (4)
  1. ROPINIROLE [Suspect]
     Active Substance: ROPINIROLE
     Indication: Parkinson^s disease
  2. ROPINIROLE [Suspect]
     Active Substance: ROPINIROLE
  3. HERBALS [Suspect]
     Active Substance: HERBALS
     Indication: Phytotherapy
  4. CARBIDOPA\LEVODOPA [Concomitant]
     Active Substance: CARBIDOPA\LEVODOPA
     Indication: Parkinson^s disease

REACTIONS (4)
  - Parkinson^s disease psychosis [Recovering/Resolving]
  - Fall [Unknown]
  - Head injury [Unknown]
  - Loss of consciousness [Unknown]
